FAERS Safety Report 10449679 (Version 1)
Quarter: 2014Q3

REPORT INFORMATION
  Report Type: Spontaneous
  Country: US (occurrence: US)
  Receive Date: 20140912
  Receipt Date: 20140912
  Transmission Date: 20150326
  Serious: No
  Sender: FDA-Public Use
  Company Number: US-INCYTE CORPORATION-2014IN001676

PATIENT
  Age: 76 Year
  Sex: Male
  Weight: 85.71 kg

DRUGS (1)
  1. JAKAFI [Suspect]
     Active Substance: RUXOLITINIB
     Indication: MYELOFIBROSIS
     Dosage: 10 MG, BID
     Route: 048
     Dates: start: 20140319

REACTIONS (2)
  - Splenomegaly [Unknown]
  - Pain [Unknown]

NARRATIVE: CASE EVENT DATE: 20140612
